FAERS Safety Report 5507493-7 (Version None)
Quarter: 2007Q4

REPORT INFORMATION
  Report Type: 
  Country: None (occurrence: None)
  Receive Date: 20071106
  Receipt Date: 20071029
  Transmission Date: 20080405
  Serious: Yes (Death)
  Sender: FDA-Public Use
  Company Number: GB-AVENTIS-200720076GDDC

PATIENT
  Age: 69 Year

DRUGS (1)
  1. GLYBURIDE [Suspect]

REACTIONS (1)
  - DEATH [None]
